FAERS Safety Report 8861264 (Version 4)
Quarter: 2012Q4

REPORT INFORMATION
  Report Type: 
  Country: US (occurrence: US)
  Receive Date: 20121026
  Receipt Date: 20121218
  Transmission Date: 20130627
  Serious: No
  Sender: FDA-Public Use
  Company Number: US-PFIZER INC-2012266073

PATIENT
  Age: 51 Year
  Sex: Female

DRUGS (6)
  1. IBUPROFEN [Suspect]
     Indication: PAIN
     Dosage: UNK
  2. HYDROMORPHONE [Suspect]
     Indication: PAIN
     Dosage: UNK
  3. OXYCODONE HYDROCHLORIDE [Suspect]
     Indication: PAIN
     Dosage: UNK
  4. TYLENOL [Suspect]
     Indication: PAIN
     Dosage: UNK
  5. ALEVE [Suspect]
     Indication: PAIN
     Dosage: UNK
  6. METHYLSULFONYLMETHANE [Suspect]
     Indication: PAIN
     Dosage: UNK

REACTIONS (3)
  - Somnolence [Unknown]
  - Disturbance in attention [Unknown]
  - Impaired driving ability [Unknown]
